FAERS Safety Report 19283807 (Version 2)
Quarter: 2025Q3

REPORT INFORMATION
  Report Type: Spontaneous
  Country: IR (occurrence: IR)
  Receive Date: 20210521
  Receipt Date: 20250813
  Transmission Date: 20251020
  Serious: Yes (Death)
  Sender: MERCK SHARP & DOHME LLC
  Company Number: IR-009507513-2105IRN004525

PATIENT
  Age: 66 Year
  Sex: Female

DRUGS (7)
  1. CASPOFUNGIN ACETATE [Suspect]
     Active Substance: CASPOFUNGIN ACETATE
     Indication: Bronchopulmonary aspergillosis
     Dates: start: 2020
  2. VORICONAZOLE [Suspect]
     Active Substance: VORICONAZOLE
     Indication: Aspergillus infection
     Dosage: DOSE DESCRIPTION : 6 MILLIGRAM/KILOGRAM, EVERY 12 HOURS?DAILY DOSE : 12 MILLIGRAM/KILOGRAM?REGIME...
     Dates: start: 2020, end: 2020
  3. VORICONAZOLE [Suspect]
     Active Substance: VORICONAZOLE
     Indication: Aspergillus infection
     Dosage: DOSE DESCRIPTION : 4 MILLIGRAM/KILOGRAM, EVERY 12 HOURS?DAILY DOSE : 8 MILLIGRAM/KILOGRAM
     Dates: start: 2020
  4. INTERFERON BETA-1A [Concomitant]
     Active Substance: INTERFERON BETA-1A
     Indication: COVID-19 pneumonia
     Route: 058
     Dates: start: 202010, end: 2020
  5. DEXAMETHASONE [Concomitant]
     Active Substance: DEXAMETHASONE
     Indication: COVID-19 pneumonia
     Dosage: DOSE DESCRIPTION : 8 MILLIGRAM, DAILY?DAILY DOSE : 8 MILLIGRAM
     Route: 042
     Dates: start: 202010, end: 2020
  6. MEROPENEM [Concomitant]
     Active Substance: MEROPENEM
     Indication: COVID-19 pneumonia
     Dosage: DOSE DESCRIPTION : 1 GRAM, EVERY 8 HOURS?DAILY DOSE : 3 GRAM
     Dates: start: 2020
  7. VANCOMYCIN [Concomitant]
     Active Substance: VANCOMYCIN
     Indication: COVID-19 pneumonia
     Dosage: DOSE DESCRIPTION : 1 GRAM, EVERY 12 HRS?DAILY DOSE : 2 GRAM
     Dates: start: 2020

REACTIONS (1)
  - Drug ineffective [Fatal]

NARRATIVE: CASE EVENT DATE: 20200101
